FAERS Safety Report 13025333 (Version 1)
Quarter: 2016Q4

REPORT INFORMATION
  Report Type: Report from Study
  Country: None (occurrence: DE)
  Receive Date: 20161214
  Receipt Date: 20161214
  Transmission Date: 20170207
  Serious: Yes (Hospitalization)
  Sender: FDA-Public Use
  Company Number: DE-ABBVIE-16K-062-1804805-00

PATIENT
  Age: 46 Year
  Sex: Female
  Weight: 85 kg

DRUGS (1)
  1. HUMIRA [Suspect]
     Active Substance: ADALIMUMAB
     Indication: PSORIASIS
     Route: 058
     Dates: start: 20080805

REACTIONS (4)
  - Anxiety [Recovering/Resolving]
  - Apathy [Recovering/Resolving]
  - Depression [Recovering/Resolving]
  - Depressed mood [Recovering/Resolving]

NARRATIVE: CASE EVENT DATE: 201608
